FAERS Safety Report 6576253-0 (Version None)
Quarter: 2010Q1

REPORT INFORMATION
  Report Type: 
  Country: None (occurrence: None)
  Receive Date: 20100210
  Receipt Date: 20100129
  Transmission Date: 20100710
  Serious: Yes (Hospitalization)
  Sender: FDA-Public Use
  Company Number: GB-RANBAXY-2010RR-30384

PATIENT
  Age: 44 Year
  Sex: Male

DRUGS (2)
  1. PARACETAMOL [Suspect]
     Indication: ACCIDENTAL EXPOSURE
     Route: 048
  2. LEMSIP [Suspect]
     Indication: ACCIDENTAL EXPOSURE
     Route: 048

REACTIONS (3)
  - ACCIDENTAL OVERDOSE [None]
  - DRUG ADMINISTRATION ERROR [None]
  - OVERDOSE [None]
